FAERS Safety Report 23565126 (Version 1)
Quarter: 2024Q1

REPORT INFORMATION
  Report Type: Spontaneous
  Country: US (occurrence: None)
  Receive Date: 20240223
  Receipt Date: 20240223
  Transmission Date: 20240410
  Serious: Yes (Life-Threatening, Hospitalization, Other)
  Sender: FDA-Public Use
  Company Number: None

PATIENT
  Age: 59 Year
  Sex: Female
  Weight: 57.6 kg

DRUGS (12)
  1. MOUNJARO [Suspect]
     Active Substance: TIRZEPATIDE
     Indication: Type 2 diabetes mellitus
     Dosage: OTHER QUANTITY : 1 INJECTION(S);?OTHER FREQUENCY : WEEKLY;?
     Route: 058
     Dates: start: 20230727, end: 20231203
  2. MOUNJARO [Suspect]
     Active Substance: TIRZEPATIDE
     Indication: Weight decreased
  3. VITAMIN B 12 INJECTIONS [Concomitant]
  4. ZOFRAN 4 MG [Concomitant]
  5. GABPENTIN [Concomitant]
  6. LEVOTHYROXINE [Concomitant]
     Active Substance: LEVOTHYROXINE\LEVOTHYROXINE SODIUM
  7. METFORMIN [Concomitant]
     Active Substance: METFORMIN HYDROCHLORIDE
  8. LUNESTA [Concomitant]
     Active Substance: ESZOPICLONE
  9. KLONOPIN [Concomitant]
     Active Substance: CLONAZEPAM
  10. MULTIVITAMIN WITH ESTRA VITAMIN D [Concomitant]
  11. IBUPROFEN [Concomitant]
     Active Substance: IBUPROFEN
  12. TYLENOL [Concomitant]

REACTIONS (17)
  - Large intestine perforation [None]
  - Faecaloma [None]
  - Ileus paralytic [None]
  - Abdominal abscess [None]
  - Pleural effusion [None]
  - Liver abscess [None]
  - Hypomagnesaemia [None]
  - White blood cell count increased [None]
  - Blood potassium abnormal [None]
  - Escherichia infection [None]
  - Neuralgia [None]
  - Stoma site pain [None]
  - Nausea [None]
  - Gastrointestinal necrosis [None]
  - Anxiety [None]
  - Gastrointestinal wall thinning [None]
  - Abdominal infection [None]

NARRATIVE: CASE EVENT DATE: 20231206
